FAERS Safety Report 5382736-1 (Version None)
Quarter: 2007Q3

REPORT INFORMATION
  Report Type: 
  Country: None (occurrence: None)
  Receive Date: 20070702
  Receipt Date: 20070521
  Transmission Date: 20080115
  Serious: No
  Sender: FDA-Public Use
  Company Number: 2007PV032955

PATIENT
  Sex: Female

DRUGS (1)
  1. SYMLIN [Suspect]
     Indication: DRUG USE FOR UNKNOWN INDICATION
     Dosage: 60 MCG;TID;SC
     Route: 058
     Dates: start: 20070501, end: 20070501

REACTIONS (2)
  - SENSITIVITY OF TEETH [None]
  - TOOTH DISCOLOURATION [None]
